FAERS Safety Report 26134130 (Version 1)
Quarter: 2025Q4

REPORT INFORMATION
  Report Type: Spontaneous
  Country: EU (occurrence: EU)
  Receive Date: 20251209
  Receipt Date: 20251209
  Transmission Date: 20260118
  Serious: Yes (Other)
  Sender: BAUSCH AND LOMB
  Company Number: EU-JNJFOC-20251166982

PATIENT
  Age: 60 Year
  Sex: Male

DRUGS (5)
  1. DEXAMETHASONE [Suspect]
     Active Substance: DEXAMETHASONE
     Indication: Plasma cell myeloma
     Route: 065
  2. BORTEZOMIB [Suspect]
     Active Substance: BORTEZOMIB
     Indication: Plasma cell myeloma
     Dosage: CYCLE 1
     Route: 065
     Dates: start: 202401
  3. BORTEZOMIB [Suspect]
     Active Substance: BORTEZOMIB
     Dosage: CYCLE 2
     Route: 065
     Dates: start: 20240210
  4. BORTEZOMIB [Suspect]
     Active Substance: BORTEZOMIB
     Dosage: CYCLE 3
     Route: 065
     Dates: start: 20240312
  5. BENDAMUSTINE [Suspect]
     Active Substance: BENDAMUSTINE
     Indication: Plasma cell myeloma
     Route: 065
     Dates: start: 202401

REACTIONS (3)
  - Plasma cell myeloma [Unknown]
  - Compression fracture [Unknown]
  - Platelet count decreased [Unknown]

NARRATIVE: CASE EVENT DATE: 20240601
